FAERS Safety Report 5314330-2 (Version None)
Quarter: 2007Q2

REPORT INFORMATION
  Report Type: 
  Country: None (occurrence: None)
  Receive Date: 20070502
  Receipt Date: 20070423
  Transmission Date: 20071010
  Serious: Yes (Disabling)
  Sender: FDA-Public Use
  Company Number: FR-JNJFOC-20061205225

PATIENT
  Age: 47 Year
  Sex: Male

DRUGS (4)
  1. TAVANIC [Suspect]
     Indication: PNEUMONIA
     Route: 048
  2. CELESTENE [Concomitant]
     Indication: PNEUMONIA
     Route: 048
  3. ORELOX [Concomitant]
     Indication: PNEUMONIA
     Route: 065
  4. CORTICOSTEROIDS [Concomitant]
     Indication: ASTHMA
     Route: 055

REACTIONS (3)
  - COMPLEX REGIONAL PAIN SYNDROME [None]
  - TENDON RUPTURE [None]
  - TENDONITIS [None]
